FAERS Safety Report 9387986 (Version 1)
Quarter: 2013Q3

REPORT INFORMATION
  Report Type: Spontaneous
  Country: FR (occurrence: FR)
  Receive Date: 20130708
  Receipt Date: 20130708
  Transmission Date: 20140515
  Serious: Yes (Hospitalization)
  Sender: FDA-Public Use
  Company Number: FR-TEVA-412364ISR

PATIENT
  Sex: Male

DRUGS (1)
  1. FUROSEMIDE TEVA [Suspect]
     Dosage: 40 MILLIGRAM DAILY;
     Route: 048
     Dates: end: 20130607

REACTIONS (1)
  - Somnolence [Unknown]
